FAERS Safety Report 17806759 (Version 2)
Quarter: 2020Q2

REPORT INFORMATION
  Report Type: Spontaneous
  Country: JP (occurrence: JP)
  Receive Date: 20200520
  Receipt Date: 20200605
  Transmission Date: 20200714
  Serious: Yes (Hospitalization, Disabling)
  Sender: FDA-Public Use
  Company Number: JP-ASTRAZENECA-2020SE64763

PATIENT
  Age: 78 Year
  Sex: Female
  Weight: 50 kg

DRUGS (14)
  1. TACROLIMUS HYDRATE [Concomitant]
     Active Substance: TACROLIMUS
     Route: 048
  2. RILMAZAFONE HYDROCHLORIDE HYDRATE [Concomitant]
     Active Substance: RILMAZAFONE HYDROCHLORIDE
     Indication: INSOMNIA
     Route: 048
  3. CILOSTAZOL OD [Concomitant]
     Active Substance: CILOSTAZOL
     Route: 048
  4. METOLATE [Concomitant]
     Active Substance: METHOTREXATE
     Indication: RHEUMATOID ARTHRITIS
     Route: 048
  5. NEXIUM [Suspect]
     Active Substance: ESOMEPRAZOLE MAGNESIUM
     Route: 048
  6. MEDROL [Suspect]
     Active Substance: METHYLPREDNISOLONE
     Indication: RHEUMATOID ARTHRITIS
     Dosage: 4 MG IN THE MORNING AND 3 MG IN THE EVENING, TWO TIMES A DAY
     Route: 048
  7. FOLIAMIN [Concomitant]
     Active Substance: FOLIC ACID
     Dosage: SATURDAY MORNING, 5 MG
     Route: 048
  8. NICORANDIL [Concomitant]
     Active Substance: NICORANDIL
     Route: 048
  9. HALCION [Concomitant]
     Active Substance: TRIAZOLAM
     Indication: INSOMNIA
     Route: 048
  10. PRALIA [Suspect]
     Active Substance: DENOSUMAB
     Indication: RHEUMATOID ARTHRITIS
     Dosage: 600.0MG UNKNOWN
     Route: 058
     Dates: start: 20151228, end: 20170104
  11. PRALIA [Suspect]
     Active Substance: DENOSUMAB
     Indication: RHEUMATOID ARTHRITIS
     Dosage: 600.0MG UNKNOWN
     Route: 058
     Dates: start: 20171018, end: 20200106
  12. CANDESARTAN. [Concomitant]
     Active Substance: CANDESARTAN
     Route: 048
  13. TRAMAL OD [Concomitant]
     Active Substance: TRAMADOL
     Indication: LUMBAR SPINAL STENOSIS
     Route: 048
  14. BENET [Suspect]
     Active Substance: RISEDRONATE SODIUM
     Dosage: DOSE UNKNOWN
     Route: 048
     Dates: end: 2015

REACTIONS (5)
  - Bone pain [Unknown]
  - Atypical femur fracture [Recovering/Resolving]
  - Fall [Unknown]
  - Bone hypertrophy [Unknown]
  - X-ray limb abnormal [Unknown]

NARRATIVE: CASE EVENT DATE: 202002
